FAERS Safety Report 9994715 (Version 1)
Quarter: 2014Q1

REPORT INFORMATION
  Report Type: Other
  Country: US (occurrence: US)
  Receive Date: 20140311
  Receipt Date: 20140311
  Transmission Date: 20141002
  Serious: Yes (Other)
  Sender: FDA-Public Use
  Company Number: US-SHIRE-US201400303

PATIENT
  Sex: 0

DRUGS (2)
  1. FIRAZYR [Suspect]
     Indication: HEREDITARY ANGIOEDEMA
     Dosage: UNK UNK, AS REQ^D
     Route: 058
  2. CINRYZE [Concomitant]
     Indication: HEREDITARY ANGIOEDEMA
     Dosage: UNK, UNKNOWN
     Route: 065

REACTIONS (14)
  - Pharyngeal oedema [Unknown]
  - Dyspnoea [Unknown]
  - Hereditary angioedema [Unknown]
  - Condition aggravated [Unknown]
  - Bacterial infection [Unknown]
  - Sinusitis [Unknown]
  - Influenza [Unknown]
  - Eye pain [Unknown]
  - Fall [Recovered/Resolved]
  - Contusion [Unknown]
  - Joint swelling [Unknown]
  - Local swelling [Unknown]
  - Eye swelling [Unknown]
  - Drug effect decreased [Unknown]
